FAERS Safety Report 18325258 (Version 4)
Quarter: 2022Q1

REPORT INFORMATION
  Report Type: Report from Study
  Country: NL (occurrence: NL)
  Receive Date: 20200928
  Receipt Date: 20220124
  Transmission Date: 20220423
  Serious: Yes (Hospitalization, Other)
  Sender: FDA-Public Use
  Company Number: NL-ABBVIE-20K-114-3582118-00

PATIENT
  Age: 57 Year
  Sex: Male

DRUGS (4)
  1. CARBIDOPA\LEVODOPA [Suspect]
     Active Substance: CARBIDOPA\LEVODOPA
     Indication: Parkinson^s disease
     Dosage: MD 8.8 ML, CD 3.1 ML/HR, ED 1.0 ML
     Route: 050
     Dates: start: 20200921, end: 2020
  2. CARBIDOPA\LEVODOPA [Suspect]
     Active Substance: CARBIDOPA\LEVODOPA
     Dosage: MD: 8.8 ML; CD: 3.2 ML/H; ED: 1.0 ML
     Route: 050
     Dates: start: 2020, end: 2020
  3. CARBIDOPA\LEVODOPA [Suspect]
     Active Substance: CARBIDOPA\LEVODOPA
     Dosage: MD: 8.8 ML; CD: 3.3 ML/H; ED: 2.5 ML
     Route: 050
     Dates: start: 2020
  4. CARBIDOPA\LEVODOPA [Suspect]
     Active Substance: CARBIDOPA\LEVODOPA
     Dosage: MD: 9.8 ML; CD: 3.5 ML/H; ED: 2.5 ML
     Route: 050

REACTIONS (6)
  - Procedural pain [Not Recovered/Not Resolved]
  - Pneumoperitoneum [Unknown]
  - Muscle spasms [Not Recovered/Not Resolved]
  - Stoma site pain [Recovered/Resolved]
  - On and off phenomenon [Not Recovered/Not Resolved]
  - Muscle spasms [Not Recovered/Not Resolved]

NARRATIVE: CASE EVENT DATE: 20200101
